FAERS Safety Report 4790191-5 (Version None)
Quarter: 2005Q4

REPORT INFORMATION
  Report Type: 
  Country: None (occurrence: None)
  Receive Date: 20051005
  Receipt Date: 20051005
  Transmission Date: 20060501
  Serious: Yes (Hospitalization)
  Sender: FDA-Public Use
  Company Number: None

PATIENT
  Age: 55 Year
  Sex: Female
  Weight: 45.5 kg

DRUGS (4)
  1. LISINOPRIL [Suspect]
     Indication: BLOOD PRESSURE INADEQUATELY CONTROLLED
     Dosage: LISINOPRIL 15 MG PO ONCE
     Route: 048
     Dates: start: 20040904
  2. LISINOPRIL [Suspect]
     Indication: HYPERTENSION
     Dosage: LISINOPRIL 15 MG PO ONCE
     Route: 048
     Dates: start: 20040904
  3. DILANTIN [Concomitant]
  4. HYDROCHLOROTHIAZIDE [Concomitant]

REACTIONS (2)
  - LOCAL SWELLING [None]
  - SWOLLEN TONGUE [None]
